FAERS Safety Report 21022018 (Version 1)
Quarter: 2022Q2

REPORT INFORMATION
  Report Type: Spontaneous
  Country: US (occurrence: None)
  Receive Date: 20220628
  Receipt Date: 20220628
  Transmission Date: 20220721
  Serious: No
  Sender: FDA-Public Use
  Company Number: None

PATIENT
  Age: 67 Year
  Sex: Female
  Weight: 75.02 kg

DRUGS (16)
  1. CAPECITABINE [Suspect]
     Active Substance: CAPECITABINE
     Indication: Colon cancer
     Dosage: OTHER QUANTITY : 2000-1500MG;?FREQUENCY : TWICE A DAY;?
     Route: 048
     Dates: end: 202206
  2. ACETAMINOPHEN-CODEINE#3 [Concomitant]
  3. AMBIEN [Concomitant]
     Active Substance: ZOLPIDEM TARTRATE
  4. ALPRAZOLAM [Concomitant]
     Active Substance: ALPRAZOLAM
  5. AMOXICILLIN [Concomitant]
     Active Substance: AMOXICILLIN
  6. CHOLESTYRAMINE [Concomitant]
     Active Substance: CHOLESTYRAMINE
  7. COLESEVELAM [Concomitant]
     Active Substance: COLESEVELAM
  8. FARIXIGA [Concomitant]
  9. FENTANYL [Concomitant]
     Active Substance: FENTANYL
  10. FLUOXETINE [Concomitant]
     Active Substance: FLUOXETINE HYDROCHLORIDE
  11. FUROSEMIDE [Concomitant]
     Active Substance: FUROSEMIDE
  12. IBUPROFEN [Concomitant]
     Active Substance: IBUPROFEN
  13. PREDNISONE [Concomitant]
     Active Substance: PREDNISONE
  14. RESTASIS [Concomitant]
     Active Substance: CYCLOSPORINE
  15. SULFASALAZINE [Concomitant]
     Active Substance: SULFASALAZINE
  16. VALACYCLOVIR [Concomitant]
     Active Substance: VALACYCLOVIR HYDROCHLORIDE

REACTIONS (1)
  - Hospice care [None]
